FAERS Safety Report 25990919 (Version 1)
Quarter: 2025Q4

REPORT INFORMATION
  Report Type: Spontaneous
  Country: JP (occurrence: JP)
  Receive Date: 20251103
  Receipt Date: 20251103
  Transmission Date: 20260118
  Serious: Yes (Life-Threatening, Other)
  Sender: ALEXION PHARMACEUTICALS
  Company Number: JP-ASTRAZENECA-202510JPN028360JP

PATIENT
  Age: 9 Decade
  Sex: Female

DRUGS (1)
  1. ANDEXXA [Suspect]
     Active Substance: ANDEXANET ALFA
     Indication: Drug therapy
     Route: 065

REACTIONS (2)
  - Portal venous gas [Recovered/Resolved]
  - Intestinal ischaemia [Recovered/Resolved]
